FAERS Safety Report 15251491 (Version 1)
Quarter: 2018Q3

REPORT INFORMATION
  Report Type: Spontaneous
  Country: CH (occurrence: CH)
  Receive Date: 20180807
  Receipt Date: 20180807
  Transmission Date: 20181010
  Serious: Yes (Congenital Anomaly)
  Sender: FDA-Public Use
  Company Number: CH-PFIZER INC-2018313097

PATIENT
  Sex: Female
  Weight: 2.37 kg

DRUGS (4)
  1. XANAX [Suspect]
     Active Substance: ALPRAZOLAM
     Indication: ANXIETY
     Dosage: 5 MG, 2?4X/DAY
     Route: 064
     Dates: end: 20170901
  2. TRAMAL [Suspect]
     Active Substance: TRAMADOL
     Indication: FIBROMYALGIA
     Dosage: 50MG, AS NECESSARY
     Route: 064
     Dates: end: 20170901
  3. IRFEN [Suspect]
     Active Substance: IBUPROFEN
     Indication: FIBROMYALGIA
     Dosage: 800 MG, 2X/DAY
     Route: 064
     Dates: end: 20170901
  4. VOLTAREN [Suspect]
     Active Substance: DICLOFENAC SODIUM
     Indication: FIBROMYALGIA
     Dosage: 50 MG, 2?3X/DAY
     Route: 064
     Dates: end: 20170901

REACTIONS (2)
  - Maternal exposure during pregnancy [Recovered/Resolved]
  - Congenital pyelocaliectasis [Unknown]

NARRATIVE: CASE EVENT DATE: 20180322
